FAERS Safety Report 23652620 (Version 1)
Quarter: 2024Q1

REPORT INFORMATION
  Report Type: Spontaneous
  Country: US (occurrence: None)
  Receive Date: 20240319
  Receipt Date: 20240319
  Transmission Date: 20240410
  Serious: No
  Sender: FDA-Public Use
  Company Number: None

PATIENT
  Age: 70 Year
  Sex: Male

DRUGS (24)
  1. BORTEZOMIB [Suspect]
     Active Substance: BORTEZOMIB
     Indication: Plasma cell myeloma
     Dates: start: 202403
  2. REVLIMID [Suspect]
     Active Substance: LENALIDOMIDE
     Indication: Plasma cell myeloma
     Dates: start: 202403
  3. DARZALEX [Suspect]
     Active Substance: DARATUMUMAB
     Indication: Plasma cell myeloma
     Dates: start: 202403
  4. ATORVASTATIN [Concomitant]
     Active Substance: ATORVASTATIN
  5. CLOBETASOL PROP [Concomitant]
  6. COVID19 MODERNA BIVALENT [Concomitant]
  7. CYCLOBENZAPRINE [Concomitant]
     Active Substance: CYCLOBENZAPRINE
  8. DEXAMETHASONE [Concomitant]
     Active Substance: DEXAMETHASONE
  9. DICYCLOMINE [Concomitant]
     Active Substance: DICYCLOMINE HYDROCHLORIDE
  10. DOXYCYCLINE [Concomitant]
     Active Substance: DOXYCYCLINE
  11. FLUAD 65+ [Concomitant]
  12. FLUZONE HD 65+ [Concomitant]
  13. ACETAMINOPHEN\HYDROCODONE [Concomitant]
     Active Substance: ACETAMINOPHEN\HYDROCODONE
  14. ONDANSETRON [Concomitant]
     Active Substance: ONDANSETRON
  15. RSV AREXVY [Concomitant]
  16. SPIKEVAX 12+ (COVID) [Concomitant]
  17. TRAMADOL [Concomitant]
     Active Substance: TRAMADOL\TRAMADOL HYDROCHLORIDE
  18. ASPIRIN EC LOW DOSE [Concomitant]
  19. BORTEZOMIB [Concomitant]
     Active Substance: BORTEZOMIB
  20. DARZALEX [Concomitant]
     Active Substance: DARATUMUMAB
  21. LINZESS [Concomitant]
     Active Substance: LINACLOTIDE
  22. OMEPRAZOLE [Concomitant]
     Active Substance: OMEPRAZOLE
  23. TYLENOL [Concomitant]
     Active Substance: ACETAMINOPHEN
  24. ACYCLOVIR [Concomitant]

REACTIONS (2)
  - Therapy interrupted [None]
  - Pain [None]

NARRATIVE: CASE EVENT DATE: 20240319
